FAERS Safety Report 18937809 (Version 3)
Quarter: 2021Q3

REPORT INFORMATION
  Report Type: Report from Study
  Country: US (occurrence: US)
  Receive Date: 20210225
  Receipt Date: 20210705
  Transmission Date: 20211014
  Serious: No
  Sender: FDA-Public Use
  Company Number: NVSC2021US038786

PATIENT
  Age: 48 Year
  Sex: Female

DRUGS (1)
  1. COSENTYX [Suspect]
     Active Substance: SECUKINUMAB
     Indication: PSORIATIC ARTHROPATHY
     Dosage: 150 MG Q WEEK FOR FIVE WEEKS AND THEN Q FOUR WEEKS
     Route: 058

REACTIONS (5)
  - Arthralgia [Unknown]
  - Feeling abnormal [Unknown]
  - Miliaria [Unknown]
  - Drug ineffective [Unknown]
  - Sensitive skin [Unknown]

NARRATIVE: CASE EVENT DATE: 20210121
